FAERS Safety Report 9526881 (Version 2)
Quarter: 2013Q3

REPORT INFORMATION
  Report Type: Report from Study
  Country: GR (occurrence: GR)
  Receive Date: 20130916
  Receipt Date: 20130916
  Transmission Date: 20140515
  Serious: Yes (Hospitalization)
  Sender: FDA-Public Use
  Company Number: GR-ABBVIE-12P-066-0996633-00

PATIENT
  Age: 67 Year
  Sex: Male
  Weight: 79 kg

DRUGS (11)
  1. ZEMPLAR [Suspect]
     Indication: HYPERPARATHYROIDISM SECONDARY
     Route: 042
     Dates: start: 20120501
  2. ZEMPLAR [Suspect]
     Indication: RENAL FAILURE CHRONIC
  3. ZEMPLAR [Suspect]
     Indication: HAEMODIALYSIS
  4. CARVEDILOL [Concomitant]
     Indication: HYPERTENSION
     Route: 048
     Dates: start: 20111005
  5. OMNIC TOCAS [Concomitant]
     Indication: BENIGN PROSTATIC HYPERPLASIA
     Route: 048
     Dates: start: 20100308
  6. ATORVASTATIN [Concomitant]
     Indication: HYPERLIPIDAEMIA
     Route: 048
     Dates: start: 2010
  7. OMACOR [Concomitant]
     Indication: HYPERLIPIDAEMIA
     Route: 048
     Dates: start: 2010
  8. SEVELAMER [Concomitant]
     Indication: HYPERPHOSPHATAEMIA
     Dosage: 1600 X 3 / D
     Route: 048
     Dates: start: 2009
  9. LANTHANUM CARBONATE [Concomitant]
     Indication: HYPERPHOSPHATAEMIA
     Dosage: 1500 X 3 / D
     Route: 048
     Dates: start: 2010
  10. LYRICA [Concomitant]
     Indication: PAIN
     Route: 048
  11. CLOPIDOGREL [Concomitant]
     Indication: ANGIOPATHY
     Route: 048
     Dates: start: 2010, end: 20121008

REACTIONS (3)
  - Haemorrhoids [Recovered/Resolved]
  - Haematocrit decreased [Recovered/Resolved]
  - Haematochezia [Recovered/Resolved]
